FAERS Safety Report 7033608-8 (Version None)
Quarter: 2010Q4

REPORT INFORMATION
  Report Type: 
  Country: None (occurrence: None)
  Receive Date: 20101007
  Receipt Date: 20101005
  Transmission Date: 20110411
  Serious: Yes (Death)
  Sender: FDA-Public Use
  Company Number: PHHY2010US63531

PATIENT
  Sex: Male

DRUGS (5)
  1. ZOMETA [Suspect]
     Indication: BLOOD PRESSURE
     Dosage: UNK
     Dates: start: 20090901, end: 20100301
  2. MULTI-VITAMINS [Suspect]
     Route: 048
  3. CHEMOTHERAPEUTICS NOS [Concomitant]
  4. LORA TAB [Concomitant]
  5. DRUG THERAPY NOS [Concomitant]

REACTIONS (1)
  - DEATH [None]
